FAERS Safety Report 5830152-8 (Version None)
Quarter: 2008Q3

REPORT INFORMATION
  Report Type: 
  Country: None (occurrence: None)
  Receive Date: 20080801
  Receipt Date: 20080512
  Transmission Date: 20090109
  Serious: No
  Sender: FDA-Public Use
  Company Number: US-BAYER-200822983NA

PATIENT
  Age: 39 Year
  Sex: Female
  Weight: 129 kg

DRUGS (2)
  1. MIRENA [Suspect]
     Indication: CONTRACEPTION
     Route: 015
     Dates: start: 20061101
  2. SYNTHROID [Concomitant]
     Dosage: AS USED: 175 MG
     Route: 065

REACTIONS (2)
  - AMENORRHOEA [None]
  - ORAL HERPES [None]
